FAERS Safety Report 6908996-0 (Version None)
Quarter: 2010Q3

REPORT INFORMATION
  Report Type: 
  Country: None (occurrence: None)
  Receive Date: 20100805
  Receipt Date: 20100726
  Transmission Date: 20110219
  Serious: Yes (Other)
  Sender: FDA-Public Use
  Company Number: US-BAYER-201029254NA

PATIENT
  Age: 22 Year
  Sex: Female

DRUGS (1)
  1. YASMIN [Suspect]
     Indication: PRODUCT USED FOR UNKNOWN INDICATION
     Route: 048
     Dates: start: 20050901, end: 20081101

REACTIONS (5)
  - CHOLELITHIASIS [None]
  - GALLBLADDER PAIN [None]
  - GASTROINTESTINAL DISORDER [None]
  - PAIN [None]
  - POST CHOLECYSTECTOMY SYNDROME [None]
